FAERS Safety Report 19702458 (Version 2)
Quarter: 2021Q3

REPORT INFORMATION
  Report Type: Spontaneous
  Country: US (occurrence: US)
  Receive Date: 20210815
  Receipt Date: 20210824
  Transmission Date: 20211014
  Serious: No
  Sender: FDA-Public Use
  Company Number: US-AMGEN-USASP2021122409

PATIENT
  Age: 66 Year
  Sex: Male

DRUGS (2)
  1. VITAMIN B12 [Concomitant]
     Active Substance: CYANOCOBALAMIN
  2. PROLIA [Suspect]
     Active Substance: DENOSUMAB
     Indication: COELIAC DISEASE
     Dosage: 60 MILLIGRAM, Q6MO
     Route: 058
     Dates: start: 20130107

REACTIONS (3)
  - Off label use [Unknown]
  - Arthralgia [Not Recovered/Not Resolved]
  - Fall [Unknown]

NARRATIVE: CASE EVENT DATE: 20130107
